FAERS Safety Report 5837839-1 (Version None)
Quarter: 2008Q3

REPORT INFORMATION
  Report Type: 
  Country: None (occurrence: None)
  Receive Date: 20080808
  Receipt Date: 20071219
  Transmission Date: 20090109
  Serious: No
  Sender: FDA-Public Use
  Company Number: A0700361A

PATIENT
  Sex: Female

DRUGS (1)
  1. PAXIL CR [Suspect]
     Indication: DRUG USE FOR UNKNOWN INDICATION
     Route: 048

REACTIONS (10)
  - ADVERSE EVENT [None]
  - BURNOUT SYNDROME [None]
  - CHILLS [None]
  - DIARRHOEA [None]
  - EATING DISORDER [None]
  - INFECTION [None]
  - LACTOSE INTOLERANCE [None]
  - MALAISE [None]
  - PYREXIA [None]
  - THYROID DISORDER [None]
